APPROVED DRUG PRODUCT: C-SOLVE-2
Active Ingredient: ERYTHROMYCIN
Strength: 2%
Dosage Form/Route: SOLUTION;TOPICAL
Application: A062468 | Product #001
Applicant: FOUGERA PHARMACEUTICALS INC
Approved: Jul 3, 1985 | RLD: No | RS: No | Type: DISCN